FAERS Safety Report 15489168 (Version 2)
Quarter: 2019Q2

REPORT INFORMATION
  Report Type: Spontaneous
  Country: US (occurrence: US)
  Receive Date: 20181011
  Receipt Date: 20190429
  Transmission Date: 20190711
  Serious: No
  Sender: FDA-Public Use
  Company Number: US-PFIZER INC-2018352847

PATIENT
  Age: 70 Year
  Sex: Male
  Weight: 120 kg

DRUGS (3)
  1. PLAQUENIL [Suspect]
     Active Substance: HYDROXYCHLOROQUINE SULFATE
     Dosage: UNK
  2. XELJANZ [Suspect]
     Active Substance: TOFACITINIB CITRATE
     Indication: GOUT
     Dosage: 5 MG, 1X/DAY
  3. XELJANZ [Suspect]
     Active Substance: TOFACITINIB CITRATE
     Indication: RHEUMATOID ARTHRITIS
     Dosage: 5 MG, 2X/DAY
     Route: 048

REACTIONS (4)
  - Retinal disorder [Unknown]
  - Product use issue [Unknown]
  - Condition aggravated [Unknown]
  - Visual impairment [Unknown]

NARRATIVE: CASE EVENT DATE: 201808
